FAERS Safety Report 6148457-2 (Version None)
Quarter: 2009Q2

REPORT INFORMATION
  Report Type: 
  Country: None (occurrence: None)
  Receive Date: 20090408
  Receipt Date: 20090407
  Transmission Date: 20091009
  Serious: Yes (Hospitalization)
  Sender: FDA-Public Use
  Company Number: US-ROXANE LABORATORIES, INC.-2009-RO-00354RO

PATIENT
  Sex: Female
  Weight: 74 kg

DRUGS (12)
  1. PREDNISONE [Suspect]
     Indication: DIFFUSE LARGE B-CELL LYMPHOMA
     Route: 048
     Dates: start: 20090320
  2. ENZASTAURIN [Suspect]
     Indication: DIFFUSE LARGE B-CELL LYMPHOMA
     Dosage: 1125MG
     Route: 048
     Dates: start: 20090321, end: 20090321
  3. ENZASTAURIN [Suspect]
     Dosage: 500MG
     Route: 048
     Dates: start: 20090322
  4. RITUXIMAB [Suspect]
     Indication: DIFFUSE LARGE B-CELL LYMPHOMA
     Route: 042
     Dates: start: 20090320
  5. CYCLOPHOSPHAMIDE [Suspect]
     Indication: DIFFUSE LARGE B-CELL LYMPHOMA
     Route: 042
     Dates: start: 20090320
  6. DOXORUBICIN HCL [Suspect]
     Indication: DIFFUSE LARGE B-CELL LYMPHOMA
     Route: 042
     Dates: start: 20090320
  7. VINCRISTINE [Suspect]
     Indication: DIFFUSE LARGE B-CELL LYMPHOMA
     Route: 042
     Dates: start: 20090320
  8. LISINOPRIL [Concomitant]
  9. SIMVASTATIN [Concomitant]
  10. NEXIUM [Concomitant]
  11. LEVOTHYROXINE SODIUM [Concomitant]
  12. HYDROMORPHONE HCL [Concomitant]
     Dates: start: 20090312

REACTIONS (2)
  - NAUSEA [None]
  - PAIN [None]
